FAERS Safety Report 6093873-0 (Version None)
Quarter: 2009Q1

REPORT INFORMATION
  Report Type: 
  Country: None (occurrence: None)
  Receive Date: 20090224
  Receipt Date: 20090224
  Transmission Date: 20090719
  Serious: No
  Sender: FDA-Public Use
  Company Number: None

PATIENT
  Age: 39 Year
  Sex: Female
  Weight: 61.2356 kg

DRUGS (1)
  1. PRISTIQ [Suspect]
     Dosage: 50 MG DAILY INJ
     Route: 058

REACTIONS (6)
  - ABNORMAL BEHAVIOUR [None]
  - AGITATION [None]
  - DISTURBANCE IN ATTENTION [None]
  - LOSS OF EMPLOYMENT [None]
  - THINKING ABNORMAL [None]
  - WEIGHT INCREASED [None]
